FAERS Safety Report 25094948 (Version 1)
Quarter: 2025Q1

REPORT INFORMATION
  Report Type: Spontaneous
  Country: GB (occurrence: None)
  Receive Date: 20250319
  Receipt Date: 20250319
  Transmission Date: 20250409
  Serious: Yes (Disabling, Other)
  Sender: FDA-CTU
  Company Number: None

PATIENT
  Age: 23 Year
  Sex: Female
  Weight: 24.9 kg

DRUGS (5)
  1. ATOMOXETINE [Suspect]
     Active Substance: ATOMOXETINE
     Dates: start: 20250314, end: 20250315
  2. SERTRALINE [Concomitant]
     Active Substance: SERTRALINE HYDROCHLORIDE
  3. MELATONIN [Concomitant]
     Active Substance: MELATONIN
  4. IRON [Concomitant]
     Active Substance: IRON
  5. FOLIC ACID [Concomitant]
     Active Substance: FOLIC ACID

REACTIONS (5)
  - Breast pain [None]
  - Pain in extremity [None]
  - Arthralgia [None]
  - Vulvovaginal pain [None]
  - Cyst [None]

NARRATIVE: CASE EVENT DATE: 20250315
